FAERS Safety Report 7559955-9 (Version None)
Quarter: 2011Q2

REPORT INFORMATION
  Report Type: 
  Country: None (occurrence: None)
  Receive Date: 20110621
  Receipt Date: 20110610
  Transmission Date: 20111010
  Serious: Yes (Hospitalization, Other)
  Sender: FDA-Public Use
  Company Number: US-ACTELION-A-US2011-49697

PATIENT

DRUGS (11)
  1. LORAZEPAM [Concomitant]
  2. CLINDAMYCIN [Concomitant]
  3. HYDROCODONE BITARTRATE AND ACETAMINOPHEN [Concomitant]
  4. NEXIUM [Concomitant]
  5. TRACLEER [Suspect]
     Dosage: 62.5 MG, BID
     Route: 048
     Dates: start: 20101004, end: 20101104
  6. SPIRIVA [Concomitant]
  7. ADVAIR DISKUS 100/50 [Concomitant]
  8. LISINOPRIL [Concomitant]
  9. VENTOLIN HFA [Concomitant]
  10. TRACLEER [Suspect]
     Indication: PULMONARY ARTERIAL HYPERTENSION
     Dosage: 125 MG, BID
     Route: 048
     Dates: start: 20101104, end: 20110503
  11. PREDNISONE [Concomitant]

REACTIONS (10)
  - CONDITION AGGRAVATED [None]
  - AORTIC STENOSIS [None]
  - DISEASE PROGRESSION [None]
  - BLOOD ALKALINE PHOSPHATASE INCREASED [None]
  - PULMONARY HYPERTENSION [None]
  - LIVER FUNCTION TEST ABNORMAL [None]
  - ALANINE AMINOTRANSFERASE INCREASED [None]
  - PNEUMONIA [None]
  - DYSPNOEA [None]
  - ASPARTATE AMINOTRANSFERASE INCREASED [None]
